FAERS Safety Report 24641221 (Version 1)
Quarter: 2024Q4

REPORT INFORMATION
  Report Type: Spontaneous
  Country: JP (occurrence: JP)
  Receive Date: 20241120
  Receipt Date: 20241120
  Transmission Date: 20250115
  Serious: Yes (Other)
  Sender: STRIDES
  Company Number: JP-STRIDES ARCOLAB LIMITED-2024SP014973

PATIENT

DRUGS (7)
  1. TACROLIMUS [Suspect]
     Active Substance: TACROLIMUS
     Indication: Product used for unknown indication
     Dosage: UNK, (THE PATIENT^S MOTHER RECEIVED 8.5 MG/DAY)
     Route: 064
  2. TACROLIMUS [Suspect]
     Active Substance: TACROLIMUS
     Dosage: UNK, (THE PATIENT^S MOTHER RECEIVED 8 MG/DAY)
     Route: 064
  3. TACROLIMUS [Suspect]
     Active Substance: TACROLIMUS
     Dosage: UNK, (THE PATIENT^S MOTHER RECEIVED 9 MG/DAY)
     Route: 064
  4. TACROLIMUS [Suspect]
     Active Substance: TACROLIMUS
     Dosage: UNK, (THE PATIENT^S MOTHER RECEIVED 5 MG/DAY)
     Route: 064
  5. TACROLIMUS [Suspect]
     Active Substance: TACROLIMUS
     Dosage: UNK, (THE PATIENT^S MOTHER RECEIVED 13 MG/DAY)
     Route: 064
  6. TACROLIMUS [Suspect]
     Active Substance: TACROLIMUS
     Dosage: UNK, (THE PATIENT^S MOTHER RECEIVED 12 MG/DAY)
     Route: 064
  7. TACROLIMUS [Suspect]
     Active Substance: TACROLIMUS
     Dosage: UNK, (THE PATIENT^S MOTHER RECEIVED 15 MG/DAY)
     Route: 064

REACTIONS (3)
  - Neonatal asphyxia [Unknown]
  - Transient tachypnoea of the newborn [Unknown]
  - Foetal exposure during pregnancy [Unknown]
